FAERS Safety Report 20733754 (Version 2)
Quarter: 2022Q2

REPORT INFORMATION
  Report Type: Spontaneous
  Country: JP (occurrence: JP)
  Receive Date: 20220421
  Receipt Date: 20220513
  Transmission Date: 20220721
  Serious: No
  Sender: FDA-Public Use
  Company Number: JP-TAKEDA-2022TJP040708

PATIENT
  Age: 86 Year
  Sex: Male

DRUGS (1)
  1. ROZEREM [Suspect]
     Active Substance: RAMELTEON
     Indication: Insomnia
     Dosage: UNK
     Route: 048
     Dates: start: 202009

REACTIONS (2)
  - Inappropriate schedule of product administration [Unknown]
  - Somnolence [Unknown]

NARRATIVE: CASE EVENT DATE: 20200901
